FAERS Safety Report 24609582 (Version 1)
Quarter: 2024Q4

REPORT INFORMATION
  Report Type: Spontaneous
  Country: DE (occurrence: DE)
  Receive Date: 20241112
  Receipt Date: 20241112
  Transmission Date: 20250115
  Serious: Yes (Other)
  Sender: MYLAN
  Company Number: DE-MYLANLABS-2024M1101881

PATIENT
  Age: 74 Year
  Sex: Male

DRUGS (11)
  1. DOCETAXEL [Suspect]
     Active Substance: DOCETAXEL
     Indication: Hormone-refractory prostate cancer
     Dosage: UNK UNK, CYCLE, SIX CYCLES
     Route: 065
     Dates: start: 201703, end: 201707
  2. DOCETAXEL [Suspect]
     Active Substance: DOCETAXEL
     Indication: Prostate cancer metastatic
     Dosage: UNK UNK, CYCLE, SIX CYCLES
     Route: 065
     Dates: start: 202002, end: 202005
  3. ELIGARD [Suspect]
     Active Substance: LEUPROLIDE ACETATE
     Indication: Hormone-refractory prostate cancer
     Dosage: UNK
     Route: 065
     Dates: start: 201510
  4. ELIGARD [Suspect]
     Active Substance: LEUPROLIDE ACETATE
     Indication: Prostate cancer metastatic
  5. XTANDI [Suspect]
     Active Substance: ENZALUTAMIDE
     Indication: Hormone-refractory prostate cancer
     Dosage: UNK
     Route: 065
     Dates: start: 201805, end: 202005
  6. XTANDI [Suspect]
     Active Substance: ENZALUTAMIDE
     Indication: Prostate cancer metastatic
  7. LUTETIUM LU-177 VIPIVOTIDE TETRAXETAN [Suspect]
     Active Substance: LUTETIUM LU-177 VIPIVOTIDE TETRAXETAN
     Indication: Hormone-refractory prostate cancer
     Dosage: UNK UNK, CYCLE, TWO CYCLES
     Route: 065
     Dates: start: 201905, end: 201907
  8. LUTETIUM LU-177 VIPIVOTIDE TETRAXETAN [Suspect]
     Active Substance: LUTETIUM LU-177 VIPIVOTIDE TETRAXETAN
     Indication: Prostate cancer metastatic
     Dosage: UNK UNK, CYCLE, TWO CYCLES
     Route: 065
     Dates: start: 201908, end: 201911
  9. LUTETIUM LU-177 VIPIVOTIDE TETRAXETAN [Suspect]
     Active Substance: LUTETIUM LU-177 VIPIVOTIDE TETRAXETAN
     Dosage: TANDEM-PSMA-DIRECTED PRLT
     Route: 065
     Dates: start: 201911, end: 201911
  10. VIPIVOTIDE TETRAXETAN ACTINIUM AC-225 [Suspect]
     Active Substance: VIPIVOTIDE TETRAXETAN ACTINIUM AC-225
     Indication: Hormone-refractory prostate cancer
     Dosage: TANDEM-PSMA-DIRECTED PRLT
     Route: 065
     Dates: start: 201911, end: 201911
  11. VIPIVOTIDE TETRAXETAN ACTINIUM AC-225 [Suspect]
     Active Substance: VIPIVOTIDE TETRAXETAN ACTINIUM AC-225
     Indication: Prostate cancer metastatic

REACTIONS (1)
  - Drug ineffective [Unknown]

NARRATIVE: CASE EVENT DATE: 20170101
